FAERS Safety Report 9050400 (Version 2)
Quarter: 2013Q1

REPORT INFORMATION
  Report Type: Spontaneous
  Country: US (occurrence: US)
  Receive Date: 20130205
  Receipt Date: 20130219
  Transmission Date: 20140127
  Serious: No
  Sender: FDA-Public Use
  Company Number: US-PFIZER INC-2013040769

PATIENT
  Sex: Male
  Weight: 215 kg

DRUGS (3)
  1. VIAGRA [Suspect]
     Dosage: 100 MG, DAILY
     Route: 048
  2. VIAGRA [Suspect]
     Dosage: 200 MG, DAILY
  3. METFORMIN [Concomitant]
     Indication: DIABETES MELLITUS
     Dosage: 10 MG, 2X/DAY

REACTIONS (2)
  - Intentional drug misuse [Unknown]
  - Drug ineffective [Unknown]
